FAERS Safety Report 21992263 (Version 2)
Quarter: 2023Q1

REPORT INFORMATION
  Report Type: Spontaneous
  Country: US (occurrence: US)
  Receive Date: 20230214
  Receipt Date: 20230227
  Transmission Date: 20230418
  Serious: No
  Sender: FDA-Public Use
  Company Number: US-TEVA-2023-US-2854030

PATIENT
  Age: 50 Year
  Sex: Female
  Weight: 63.96 kg

DRUGS (2)
  1. CEPHALEXIN [Suspect]
     Active Substance: CEPHALEXIN
     Indication: Urinary tract infection
     Dosage: 1000 MILLIGRAM DAILY;
     Route: 065
     Dates: start: 20230114, end: 20230116
  2. CEPHALEXIN [Suspect]
     Active Substance: CEPHALEXIN
     Indication: Nephritis

REACTIONS (4)
  - Abdominal pain upper [Unknown]
  - Drug hypersensitivity [Unknown]
  - Rash [Unknown]
  - Drug ineffective [Unknown]

NARRATIVE: CASE EVENT DATE: 20230115
